FAERS Safety Report 12459612 (Version 2)
Quarter: 2016Q4

REPORT INFORMATION
  Report Type: Spontaneous
  Country: US (occurrence: US)
  Receive Date: 20160613
  Receipt Date: 20161027
  Transmission Date: 20170207
  Serious: No
  Sender: FDA-Public Use
  Company Number: US-GLAXOSMITHKLINE-US2016GSK077242

PATIENT
  Age: 82 Year
  Sex: Male

DRUGS (1)
  1. TANZEUM [Suspect]
     Active Substance: ALBIGLUTIDE
     Indication: TYPE 2 DIABETES MELLITUS
     Dosage: 30 MG, WE
     Dates: start: 20160512

REACTIONS (8)
  - Circumstance or information capable of leading to medication error [Unknown]
  - Accidental exposure to product [Unknown]
  - Device leakage [Unknown]
  - Drug ineffective [Unknown]
  - Injection site discolouration [Not Recovered/Not Resolved]
  - Device use error [Unknown]
  - Drug dose omission [Unknown]
  - Drug administered in wrong device [Unknown]

NARRATIVE: CASE EVENT DATE: 201605
